FAERS Safety Report 16206016 (Version 9)
Quarter: 2019Q3

REPORT INFORMATION
  Report Type: Report from Study
  Country: AR (occurrence: AR)
  Receive Date: 20190417
  Receipt Date: 20190909
  Transmission Date: 20191004
  Serious: Yes (Hospitalization, Other)
  Sender: FDA-Public Use
  Company Number: AR-ACTELION-A-CH2019-189177

PATIENT
  Age: 39 Year
  Sex: Female
  Weight: 104 kg

DRUGS (1)
  1. VELETRI [Suspect]
     Active Substance: EPOPROSTENOL
     Indication: PULMONARY ARTERIAL HYPERTENSION
     Dosage: 1 NG/KG, PER MIN
     Route: 042
     Dates: start: 20180801

REACTIONS (12)
  - Erythema [Unknown]
  - Gastroenteritis [Unknown]
  - Peripheral swelling [Unknown]
  - Pollakiuria [Unknown]
  - Pain in extremity [Unknown]
  - General physical condition decreased [Recovering/Resolving]
  - Apathy [Unknown]
  - Malaise [Unknown]
  - Device issue [Recovering/Resolving]
  - Feeling abnormal [Recovering/Resolving]
  - Pain in jaw [Recovering/Resolving]
  - Reflux gastritis [Recovering/Resolving]

NARRATIVE: CASE EVENT DATE: 201904
